FAERS Safety Report 5002107-7 (Version None)
Quarter: 2006Q2

REPORT INFORMATION
  Report Type: 
  Country: None (occurrence: None)
  Receive Date: 20060515
  Receipt Date: 20050824
  Transmission Date: 20061013
  Serious: Yes (Hospitalization, Other)
  Sender: FDA-Public Use
  Company Number: US-MERCK-0508USA04337

PATIENT
  Age: 44 Year
  Sex: Female
  Weight: 118 kg

DRUGS (36)
  1. CELEXA [Concomitant]
     Indication: DEPRESSION
     Route: 065
  2. CLARINEX [Concomitant]
     Indication: SEASONAL ALLERGY
     Route: 065
  3. VIOXX [Suspect]
     Indication: MIGRAINE
     Route: 048
     Dates: start: 20000101, end: 20040901
  4. VIOXX [Suspect]
     Indication: ARTHRITIS
     Route: 048
     Dates: start: 20000101, end: 20040901
  5. MACROBID [Concomitant]
     Route: 065
  6. AUGMENTIN '125' [Concomitant]
     Route: 065
  7. CIPRO [Concomitant]
     Route: 065
  8. CLONIDINE [Concomitant]
     Indication: HYPERTENSION
     Route: 065
     Dates: start: 20000101, end: 20000101
  9. PROZAC [Concomitant]
     Indication: DEPRESSION
     Route: 065
  10. WELLBUTRIN [Concomitant]
     Indication: DEPRESSION
     Route: 065
  11. ALLEGRA [Concomitant]
     Indication: SEASONAL ALLERGY
     Route: 065
  12. ZITHROMAX [Concomitant]
     Route: 065
  13. BENZONATATE [Concomitant]
     Route: 065
  14. NORMODYNE [Concomitant]
     Indication: HYPERTENSION
     Route: 065
     Dates: start: 19990101, end: 20041101
  15. DURICEF [Concomitant]
     Route: 065
  16. CLARITIN [Concomitant]
     Indication: SEASONAL ALLERGY
     Route: 065
  17. LASIX [Concomitant]
     Indication: FLUID RETENTION
     Route: 065
     Dates: start: 20000101, end: 20000101
  18. XANAX [Concomitant]
     Indication: ANXIETY
     Route: 065
  19. HYDROCHLOROTHIAZIDE [Concomitant]
     Indication: FLUID RETENTION
     Route: 065
     Dates: start: 20000101, end: 20040801
  20. LEVAQUIN [Concomitant]
     Route: 065
  21. TUSSI-12 [Concomitant]
     Route: 065
  22. CORDRAN [Concomitant]
     Route: 065
  23. ROXICET [Concomitant]
     Route: 065
     Dates: start: 20000101
  24. ASPIRIN [Concomitant]
     Indication: ARTHRITIS
     Route: 065
     Dates: start: 19920101, end: 20001201
  25. ASPIRIN [Concomitant]
     Route: 065
     Dates: start: 20001201
  26. NEURONTIN [Concomitant]
     Route: 065
  27. FLONASE [Concomitant]
     Indication: SEASONAL ALLERGY
     Route: 065
  28. PATANOL [Concomitant]
     Route: 065
  29. AMOXICILLIN [Concomitant]
     Route: 065
  30. ACCUPRIL [Concomitant]
     Indication: HYPERTENSION
     Route: 065
     Dates: start: 20000101
  31. CILOXAN [Concomitant]
     Route: 065
  32. EFFEXOR [Concomitant]
     Indication: DEPRESSION
     Route: 065
  33. ADVIL [Concomitant]
     Indication: PAIN
     Route: 065
     Dates: start: 19970101, end: 20000101
  34. MOTRIN [Concomitant]
     Indication: PAIN
     Route: 065
     Dates: start: 19970101, end: 20000101
  35. TYLENOL (CAPLET) [Concomitant]
     Indication: PAIN
     Route: 065
     Dates: start: 19970101
  36. ZOCOR [Concomitant]
     Indication: BLOOD CHOLESTEROL INCREASED
     Route: 065
     Dates: start: 19990101, end: 20000901

REACTIONS (14)
  - ANAEMIA POSTOPERATIVE [None]
  - ANGINA PECTORIS [None]
  - CEREBRAL INFARCTION [None]
  - CEREBROVASCULAR DISORDER [None]
  - CHEST PAIN [None]
  - CORONARY ARTERY DISEASE [None]
  - HAEMATURIA [None]
  - HERPES SIMPLEX [None]
  - HYPERLIPIDAEMIA [None]
  - MYOCARDIAL INFARCTION [None]
  - OBESITY [None]
  - OSTEOARTHRITIS [None]
  - SLEEP APNOEA SYNDROME [None]
  - URINARY TRACT INFECTION [None]
